FAERS Safety Report 23481762 (Version 1)
Quarter: 2024Q1

REPORT INFORMATION
  Report Type: Spontaneous
  Country: US (occurrence: US)
  Receive Date: 20240205
  Receipt Date: 20240205
  Transmission Date: 20240410
  Serious: Yes (Life-Threatening, Other)
  Sender: FDA-Public Use
  Company Number: US-PFIZER INC-PV202400010931

PATIENT
  Age: 87 Year
  Sex: Male

DRUGS (5)
  1. EPINEPHRINE [Suspect]
     Active Substance: EPINEPHRINE
     Indication: Hypotension
     Dosage: 100 UG TIME (HOURS) 1253
     Route: 042
  2. EPINEPHRINE [Suspect]
     Active Substance: EPINEPHRINE
     Dosage: 100 UG TIME (HOURS) 1257
     Route: 042
  3. EPINEPHRINE [Suspect]
     Active Substance: EPINEPHRINE
     Dosage: 200 UG TIME (HOURS) 1304
     Route: 042
  4. EPINEPHRINE [Suspect]
     Active Substance: EPINEPHRINE
     Dosage: 300 UG TIME (HOURS) 1306
     Route: 042
  5. PROPOFOL [Concomitant]
     Active Substance: PROPOFOL
     Dosage: TITRATED TO 65 UG/KG/MINUTE
     Route: 042

REACTIONS (1)
  - Treatment failure [Unknown]
